FAERS Safety Report 7739700-4 (Version None)
Quarter: 2011Q3

REPORT INFORMATION
  Report Type: 
  Country: None (occurrence: None)
  Receive Date: 20110909
  Receipt Date: 20110830
  Transmission Date: 20111222
  Serious: Yes (Hospitalization)
  Sender: FDA-Public Use
  Company Number: US-JNJFOC-20110902859

PATIENT
  Age: 28 Year
  Sex: Female

DRUGS (6)
  1. METHAMPHETAMINE HYDROCHLORIDE [Suspect]
     Indication: PRODUCT USED FOR UNKNOWN INDICATION
     Dosage: TOOK ^SEVERAL^ THAT SHE PURCHASED AT A PARTY
  2. UNSPECIFIED ANTIDEPRESSANTS [Concomitant]
     Indication: DEPRESSION
  3. ACETAMINOPHEN [Suspect]
     Route: 048
  4. ACETAMINOPHEN [Suspect]
     Indication: PRODUCT USED FOR UNKNOWN INDICATION
     Route: 048
  5. PHENYTOIN [Concomitant]
     Indication: CONVULSION
  6. ALCOHOL [Suspect]
     Indication: PRODUCT USED FOR UNKNOWN INDICATION
     Dosage: 8-10 BEERS

REACTIONS (3)
  - SUICIDE ATTEMPT [None]
  - ACUTE HEPATIC FAILURE [None]
  - INTENTIONAL OVERDOSE [None]
